FAERS Safety Report 7576390-8 (Version None)
Quarter: 2011Q2

REPORT INFORMATION
  Report Type: 
  Country: None (occurrence: None)
  Receive Date: 20110628
  Receipt Date: 20110103
  Transmission Date: 20111010
  Serious: Yes (Other)
  Sender: FDA-Public Use
  Company Number: US-BAYER-201039734NA

PATIENT
  Age: 42 Year
  Sex: Male
  Weight: 67.12 kg

DRUGS (16)
  1. TRASYLOL [Suspect]
     Indication: AORTIC VALVE REPLACEMENT
     Dosage: UNK
     Route: 042
     Dates: start: 20060518, end: 20060518
  2. NAPROXEN [Concomitant]
     Dosage: UNK UNK, PRN
  3. AMIODARONE HCL [Concomitant]
     Indication: ATRIAL FIBRILLATION
     Dosage: UNK
     Dates: start: 20060518
  4. DIOVAN [Concomitant]
     Dosage: 160 MG, UNK
     Route: 042
     Dates: start: 20060518
  5. ACETYLSALICYLIC ACID SRT [Concomitant]
     Dosage: 325 MG, QD
     Route: 048
  6. BENADRYL [Concomitant]
     Dosage: 0.5 ML, UNK
     Route: 042
     Dates: start: 20060518
  7. GENTAMICIN [Concomitant]
     Dosage: UNK
     Route: 042
     Dates: start: 20060518
  8. TRASYLOL [Suspect]
     Dosage: 200CC OVER 30MIN THEN 50CC/HR
     Dates: start: 20060518, end: 20060518
  9. TOPROL-XL [Concomitant]
     Dosage: UNK
     Dates: start: 20060501
  10. IBUPROFEN [Concomitant]
     Dosage: UNK UNK, PRN
  11. HEPARIN [Concomitant]
     Dosage: 22,000 UNITS
     Route: 042
     Dates: start: 20060518
  12. NITROGLYCERIN [Concomitant]
     Dosage: 0.4 MG, UNK
     Route: 060
  13. AVAPRO [Concomitant]
     Dosage: 150 MG, QD
     Route: 048
  14. IRBESARTAN [Concomitant]
     Route: 048
  15. FENTANYL [Concomitant]
     Dosage: 175 MG, UNK
     Route: 042
     Dates: start: 20060518
  16. ANCEF [Concomitant]
     Dosage: 2 G, UNK
     Route: 042
     Dates: start: 20060518

REACTIONS (13)
  - RENAL FAILURE [None]
  - RENAL INJURY [None]
  - INJURY [None]
  - EMOTIONAL DISTRESS [None]
  - STRESS [None]
  - FEAR [None]
  - ANXIETY [None]
  - RENAL IMPAIRMENT [None]
  - UNEVALUABLE EVENT [None]
  - PAIN [None]
  - CEREBROVASCULAR ACCIDENT [None]
  - DEPRESSION [None]
  - MULTI-ORGAN FAILURE [None]
